APPROVED DRUG PRODUCT: CHLOROQUINE PHOSPHATE
Active Ingredient: CHLOROQUINE PHOSPHATE
Strength: 500MG **Federal Register determination that product was not discontinued or withdrawn for safety or effectiveness reasons**
Dosage Form/Route: TABLET;ORAL
Application: A083082 | Product #002
Applicant: HIKMA PHARMACEUTICALS
Approved: Sep 17, 1999 | RLD: No | RS: No | Type: DISCN